FAERS Safety Report 6935784-1 (Version None)
Quarter: 2010Q3

REPORT INFORMATION
  Report Type: 
  Country: None (occurrence: None)
  Receive Date: 20100823
  Receipt Date: 20100803
  Transmission Date: 20110219
  Serious: Yes (Hospitalization, Other)
  Sender: FDA-Public Use
  Company Number: BE-BAYER-201034700GPV

PATIENT
  Age: 64 Year
  Sex: Male
  Weight: 74 kg

DRUGS (1)
  1. NEXAVAR [Suspect]
     Indication: PRODUCT USED FOR UNKNOWN INDICATION
     Dosage: UNIT DOSE: 200 MG
     Route: 048
     Dates: start: 20100708, end: 20100727

REACTIONS (17)
  - BACK PAIN [None]
  - BLISTER [None]
  - BODY TEMPERATURE INCREASED [None]
  - DECREASED APPETITE [None]
  - DECUBITUS ULCER [None]
  - DIARRHOEA [None]
  - DYSGEUSIA [None]
  - FATIGUE [None]
  - GENERAL PHYSICAL HEALTH DETERIORATION [None]
  - HAEMORRHOIDS [None]
  - HYPERTENSION [None]
  - MOUTH ULCERATION [None]
  - OEDEMA PERIPHERAL [None]
  - PALMAR-PLANTAR ERYTHRODYSAESTHESIA SYNDROME [None]
  - RASH MACULAR [None]
  - SKIN DISCOLOURATION [None]
  - WEIGHT DECREASED [None]
